FAERS Safety Report 9147977 (Version 2)
Quarter: 2013Q2

REPORT INFORMATION
  Report Type: Spontaneous
  Country: IT (occurrence: IT)
  Receive Date: 20130307
  Receipt Date: 20130415
  Transmission Date: 20140414
  Serious: Yes (Hospitalization, Other)
  Sender: FDA-Public Use
  Company Number: IT-BRISTOL-MYERS SQUIBB COMPANY-17397308

PATIENT
  Age: 81 Year
  Sex: Female
  Weight: 100 kg

DRUGS (7)
  1. COUMADIN TABS 5 MG [Suspect]
     Indication: DEEP VEIN THROMBOSIS
     Route: 048
     Dates: start: 20130108, end: 20130209
  2. VERAPAMIL HCL [Concomitant]
     Indication: HYPERTENSION
     Route: 048
  3. LORAZEPAM [Concomitant]
     Indication: INSOMNIA
     Route: 048
  4. PANTOPRAZOLE SODIUM [Concomitant]
     Route: 048
  5. ALLOPURINOL [Concomitant]
     Indication: HYPERURICAEMIA
     Route: 048
  6. NITROGLYCERIN [Concomitant]
     Route: 062
  7. AUGMENTIN [Concomitant]
     Dosage: 1DF:1 UNIT OF 875/125 MG TABLETS
     Route: 048

REACTIONS (5)
  - Oedema peripheral [Recovering/Resolving]
  - Blister [Unknown]
  - Skin ulcer [Unknown]
  - Skin necrosis [Unknown]
  - Renal failure acute [Recovering/Resolving]
